FAERS Safety Report 4591514-2 (Version None)
Quarter: 2005Q1

REPORT INFORMATION
  Report Type: 
  Country: None (occurrence: None)
  Receive Date: 20050223
  Receipt Date: 20050223
  Transmission Date: 20050727
  Serious: No
  Sender: FDA-Public Use
  Company Number: None

PATIENT
  Age: 40 Year
  Sex: Male
  Weight: 73.9363 kg

DRUGS (4)
  1. ATORVASTATIN    20 MG    PFIZER [Suspect]
     Indication: ALOPECIA
     Dosage: 20 MG   ONCE A DAY   ORAL
     Route: 048
     Dates: start: 20040602, end: 20050222
  2. FOLIC ACID [Concomitant]
  3. MULTI-VITAMINS [Concomitant]
  4. TRAZODONE HCL [Concomitant]

REACTIONS (1)
  - ALOPECIA [None]
